FAERS Safety Report 11016658 (Version 2)
Quarter: 2015Q2

REPORT INFORMATION
  Report Type: Spontaneous
  Country: US (occurrence: US)
  Receive Date: 20150412
  Receipt Date: 20150525
  Transmission Date: 20150821
  Serious: No
  Sender: FDA-Public Use
  Company Number: US-JNJFOC-20140818418

PATIENT
  Sex: Female

DRUGS (2)
  1. ORTHO NOVUM 1/35 [Suspect]
     Active Substance: ETHINYL ESTRADIOL\NORETHINDRONE
     Indication: CONTRACEPTION
     Route: 048
  2. BOCEPREVIR [Interacting]
     Active Substance: BOCEPREVIR
     Indication: PRODUCT USED FOR UNKNOWN INDICATION
     Route: 065

REACTIONS (8)
  - Metrorrhagia [Unknown]
  - Somnolence [Unknown]
  - Dizziness [Unknown]
  - Drug interaction [Unknown]
  - Dysgeusia [Unknown]
  - Headache [Unknown]
  - Nausea [Unknown]
  - Dizziness postural [Unknown]
